FAERS Safety Report 6356844-2 (Version None)
Quarter: 2009Q3

REPORT INFORMATION
  Report Type: 
  Country: None (occurrence: None)
  Receive Date: 20090915
  Receipt Date: 20090911
  Transmission Date: 20100115
  Serious: Yes (Death)
  Sender: FDA-Public Use
  Company Number: JP-WYE-H10957609

PATIENT
  Sex: Male

DRUGS (1)
  1. MYLOTARG [Suspect]
     Indication: ACUTE MYELOID LEUKAEMIA
     Dosage: NOT PROVIDED
     Route: 041
     Dates: start: 20090827, end: 20090827

REACTIONS (2)
  - PULMONARY HAEMORRHAGE [None]
  - VENOOCCLUSIVE LIVER DISEASE [None]
